FAERS Safety Report 5746745-2 (Version None)
Quarter: 2008Q2

REPORT INFORMATION
  Report Type: 
  Country: None (occurrence: None)
  Receive Date: 20080522
  Receipt Date: 20060602
  Transmission Date: 20081010
  Serious: Yes (Hospitalization)
  Sender: FDA-Public Use
  Company Number: KR-PFIZER INC-2006058579

PATIENT
  Sex: Female
  Weight: 45 kg

DRUGS (4)
  1. SU-011,248 [Suspect]
     Indication: GASTROINTESTINAL STROMAL TUMOUR
     Route: 048
  2. AMLODIPINE [Concomitant]
     Route: 048
  3. ACETAMINOPHEN [Concomitant]
     Route: 048
     Dates: start: 20060405, end: 20060410
  4. TRAMADOL HCL [Concomitant]
     Route: 048
     Dates: start: 20060409, end: 20060410

REACTIONS (4)
  - DIZZINESS [None]
  - HEADACHE [None]
  - HYPERTENSION [None]
  - SUBARACHNOID HAEMORRHAGE [None]
